FAERS Safety Report 7599856 (Version 8)
Quarter: 2013Q3

REPORT INFORMATION
  Report Type: Spontaneous
  Country: US (occurrence: US)
  Receive Date: 20100921
  Receipt Date: 20130715
  Transmission Date: 20140515
  Serious: Yes (Hospitalization, Other)
  Sender: FDA-Public Use
  Company Number: US-ROCHE-707174

PATIENT
  Age: 19 Year
  Sex: Male
  Weight: 83.9 kg

DRUGS (6)
  1. ACCUTANE [Suspect]
     Indication: ACNE
     Route: 048
     Dates: start: 200311, end: 200402
  2. ACCUTANE [Suspect]
     Dosage: STRENGTH: 40 MG AND 20 MG
     Route: 048
  3. ACCUTANE [Suspect]
     Dosage: 20 MG IN  MORNING; 40 MG AT NIGHT
     Route: 048
     Dates: start: 200503, end: 200507
  4. ADVAIR [Concomitant]
     Indication: ASTHMA
  5. METHYLPREDNISOLONE [Concomitant]
  6. ALBUTEROL [Concomitant]
     Indication: ASTHMA

REACTIONS (7)
  - Small intestinal obstruction [Unknown]
  - Irritable bowel syndrome [Unknown]
  - Inflammatory bowel disease [Unknown]
  - Polyp [Unknown]
  - Crohn^s disease [Unknown]
  - Depression [Unknown]
  - Diverticulum intestinal [Unknown]
